FAERS Safety Report 16781882 (Version 2)
Quarter: 2019Q3

REPORT INFORMATION
  Report Type: Spontaneous
  Country: CA (occurrence: CA)
  Receive Date: 20190906
  Receipt Date: 20190906
  Transmission Date: 20191005
  Serious: Yes (Hospitalization, Other)
  Sender: FDA-Public Use
  Company Number: PHHY2019CA205807

PATIENT
  Age: 2 Day
  Sex: Male
  Weight: 3 kg

DRUGS (8)
  1. ZOFRAN [Suspect]
     Active Substance: ONDANSETRON HYDROCHLORIDE
     Indication: FOETAL EXPOSURE DURING PREGNANCY
     Dosage: MATERNAL DOSE 8.0 MG, UNK
     Route: 064
  2. BUPROPION. [Suspect]
     Active Substance: BUPROPION
     Indication: FOETAL EXPOSURE DURING PREGNANCY
     Dosage: MATERNAL DOSE 300 MG, QD
     Route: 065
  3. BUPROPION. [Suspect]
     Active Substance: BUPROPION
     Dosage: MATERNAL DOSE 12 MG, QD
     Route: 063
  4. NICOTINE. [Suspect]
     Active Substance: NICOTINE
     Dosage: MATERNAL DOSE 15 MG, QD
     Route: 063
  5. BUPROPION. [Suspect]
     Active Substance: BUPROPION
     Dosage: MATERNAL DOSE 12 MG, QD
     Route: 064
  6. TRAZODONE [Suspect]
     Active Substance: TRAZODONE HYDROCHLORIDE
     Indication: FOETAL EXPOSURE DURING PREGNANCY
     Dosage: MATERNAL DOSE 100 MG QD
     Route: 065
  7. NICOTINE. [Suspect]
     Active Substance: NICOTINE
     Indication: FOETAL EXPOSURE DURING PREGNANCY
     Dosage: MATERNAL DOSE 15 MG, QD
     Route: 064
  8. BUPROPION. [Suspect]
     Active Substance: BUPROPION
     Dosage: MATERNAL DOSE 12 MG, QD
     Route: 064

REACTIONS (4)
  - Foetal exposure during pregnancy [Recovering/Resolving]
  - Poor feeding infant [Recovering/Resolving]
  - Drug withdrawal syndrome neonatal [Recovering/Resolving]
  - Exposure via breast milk [Recovering/Resolving]
